FAERS Safety Report 6263998-5 (Version None)
Quarter: 2009Q3

REPORT INFORMATION
  Report Type: 
  Country: None (occurrence: None)
  Receive Date: 20090708
  Receipt Date: 20090708
  Transmission Date: 20100115
  Serious: No
  Sender: FDA-Public Use
  Company Number: None

PATIENT
  Age: 54 Year
  Sex: Female
  Weight: 61.2356 kg

DRUGS (1)
  1. ZICAM MATRIXX INITIATIVES INC [Suspect]
     Indication: NASOPHARYNGITIS
     Dosage: ONE SWAB EVERY 4 HOURS NASAL
     Route: 045
     Dates: start: 20060101, end: 20080501

REACTIONS (6)
  - AGEUSIA [None]
  - ANOSMIA [None]
  - BURNING SENSATION [None]
  - HYPOGEUSIA [None]
  - HYPOSMIA [None]
  - LACRIMATION INCREASED [None]
